FAERS Safety Report 8194351-5 (Version None)
Quarter: 2012Q1

REPORT INFORMATION
  Report Type: 
  Country: None (occurrence: None)
  Receive Date: 20120308
  Receipt Date: 20120302
  Transmission Date: 20120608
  Serious: Yes (Death)
  Sender: FDA-Public Use
  Company Number: US-FRI-1000028820

PATIENT
  Age: 22 Year
  Sex: Female

DRUGS (3)
  1. SALICYLATE [Suspect]
  2. MORPHINE [Suspect]
  3. CITALOPRAM HYDROBROMIDE [Suspect]

REACTIONS (2)
  - TOXICITY TO VARIOUS AGENTS [None]
  - COMPLETED SUICIDE [None]
